FAERS Safety Report 12415079 (Version 1)
Quarter: 2016Q2

REPORT INFORMATION
  Report Type: Spontaneous
  Country: BR (occurrence: BR)
  Receive Date: 20160530
  Receipt Date: 20160530
  Transmission Date: 20160815
  Serious: Yes (Hospitalization, Other)
  Sender: FDA-Public Use
  Company Number: BR-ROCHE-1764177

PATIENT
  Age: 73 Year
  Sex: Male
  Weight: 66 kg

DRUGS (9)
  1. CORUS H [Concomitant]
     Active Substance: HYDROCHLOROTHIAZIDE\LOSARTAN POTASSIUM
     Route: 065
  2. OMEPRAZOLE. [Concomitant]
     Active Substance: OMEPRAZOLE
     Route: 065
  3. LUFTAL (BRAZIL) [Concomitant]
     Route: 065
  4. DIPYRONE [Concomitant]
     Active Substance: DIPYRONE
     Route: 065
  5. TEVAOXALI [Suspect]
     Active Substance: OXALIPLATIN
     Indication: COLON CANCER METASTATIC
     Dosage: 14/14 DAYS
     Route: 042
     Dates: start: 20160223
  6. FAULDFLUOR [Suspect]
     Active Substance: FLUOROURACIL
     Dosage: D1-D3 14/14 DAYS
     Route: 042
     Dates: start: 20160223
  7. AVASTIN [Suspect]
     Active Substance: BEVACIZUMAB
     Indication: COLON CANCER METASTATIC
     Dosage: 14/14 DAYS
     Route: 042
     Dates: start: 20160223
  8. METFORMIN [Concomitant]
     Active Substance: METFORMIN HYDROCHLORIDE
     Route: 065
  9. FAULDFLUOR [Suspect]
     Active Substance: FLUOROURACIL
     Indication: COLON CANCER METASTATIC
     Dosage: 14/14 DAYS
     Route: 042
     Dates: start: 20160223

REACTIONS (5)
  - Abdominal pain [Recovering/Resolving]
  - Diarrhoea [Recovering/Resolving]
  - Dehydration [Recovering/Resolving]
  - Colitis [Recovering/Resolving]
  - General physical health deterioration [Recovering/Resolving]

NARRATIVE: CASE EVENT DATE: 201605
